FAERS Safety Report 8371199-X (Version None)
Quarter: 2012Q2

REPORT INFORMATION
  Report Type: 
  Country: None (occurrence: None)
  Receive Date: 20120518
  Receipt Date: 20120511
  Transmission Date: 20120825
  Serious: Yes (Hospitalization)
  Sender: FDA-Public Use
  Company Number: CA-ABBOTT-12P-028-0932638-00

PATIENT
  Sex: Female

DRUGS (1)
  1. HUMIRA [Suspect]
     Indication: RHEUMATOID ARTHRITIS
     Route: 058
     Dates: start: 20111021, end: 20120101

REACTIONS (11)
  - LUNG DISORDER [None]
  - CARDIAC DISORDER [None]
  - MALAISE [None]
  - PULMONARY OEDEMA [None]
  - DIZZINESS [None]
  - BURNING SENSATION [None]
  - ATRIAL FIBRILLATION [None]
  - BLOOD PRESSURE IMMEASURABLE [None]
  - RADIAL PULSE ABNORMAL [None]
  - GENERALISED OEDEMA [None]
  - FEELING HOT [None]
